FAERS Safety Report 10977727 (Version 1)
Quarter: 2015Q1

REPORT INFORMATION
  Report Type: Spontaneous
  Country: US (occurrence: None)
  Receive Date: 20150330
  Receipt Date: 20150330
  Transmission Date: 20150721
  Serious: Yes (Other)
  Sender: FDA-Public Use
  Company Number: ADR-2015-00598

PATIENT
  Age: 52 Year
  Sex: Female

DRUGS (1)
  1. BACLOFEN INTRATHECAL [Suspect]
     Active Substance: BACLOFEN
     Indication: MUSCLE SPASTICITY

REACTIONS (7)
  - Quadriplegia [None]
  - Drug withdrawal syndrome [None]
  - Progressive multiple sclerosis [None]
  - Therapy change [None]
  - Paralysis [None]
  - Disease progression [None]
  - Asthenia [None]
